FAERS Safety Report 6485287-6 (Version None)
Quarter: 2009Q4

REPORT INFORMATION
  Report Type: 
  Country: None (occurrence: None)
  Receive Date: 20091209
  Receipt Date: 20091203
  Transmission Date: 20100525
  Serious: Yes (Other)
  Sender: FDA-Public Use
  Company Number: US-MERCK-0907USA05422

PATIENT
  Age: 63 Year
  Sex: Female
  Weight: 58 kg

DRUGS (3)
  1. FOSAMAX [Suspect]
     Indication: OSTEOPOROSIS
     Route: 048
     Dates: start: 20000101, end: 20070801
  2. FOSAMAX [Suspect]
     Indication: OSTEOPENIA
     Route: 048
     Dates: start: 20000101, end: 20070801
  3. CALCIUM (UNSPECIFIED) [Concomitant]
     Indication: OSTEOPOROSIS
     Route: 048

REACTIONS (18)
  - ABDOMINAL PAIN LOWER [None]
  - ADVERSE DRUG REACTION [None]
  - ARTHRITIS [None]
  - BREAST CALCIFICATIONS [None]
  - COLONIC POLYP [None]
  - CONSTIPATION [None]
  - CYST [None]
  - CYSTITIS [None]
  - DIVERTICULITIS [None]
  - DYSPEPSIA [None]
  - FEMUR FRACTURE [None]
  - HEART RATE IRREGULAR [None]
  - HYPERLIPIDAEMIA [None]
  - MUSCLE SPASMS [None]
  - MUSCULOSKELETAL DISORDER [None]
  - TEMPOROMANDIBULAR JOINT SYNDROME [None]
  - TOOTH DISORDER [None]
  - URINARY TRACT INFECTION [None]
